FAERS Safety Report 13735461 (Version 1)
Quarter: 2017Q3

REPORT INFORMATION
  Report Type: Spontaneous
  Country: US (occurrence: US)
  Receive Date: 20170710
  Receipt Date: 20170710
  Transmission Date: 20171127
  Serious: No
  Sender: FDA-Public Use
  Company Number: US-PFIZER INC-2017296035

PATIENT
  Age: 70 Year
  Sex: Male

DRUGS (1)
  1. VITAMIN A [Suspect]
     Active Substance: VITAMIN A
     Dosage: UNK

REACTIONS (1)
  - Drug hypersensitivity [Unknown]
